FAERS Safety Report 25322781 (Version 3)
Quarter: 2025Q3

REPORT INFORMATION
  Report Type: Report from Study
  Country: US (occurrence: US)
  Receive Date: 20250516
  Receipt Date: 20250724
  Transmission Date: 20251020
  Serious: Yes (Hospitalization, Other)
  Sender: TAKEDA
  Company Number: US-TAKEDA-2025TUS045451

PATIENT
  Age: 40 Year
  Sex: Male

DRUGS (2)
  1. ANTIHEMOPHILIC FACTOR HUMAN [Suspect]
     Active Substance: ANTIHEMOPHILIC FACTOR HUMAN
     Indication: Product used for unknown indication
     Dosage: 3720 INTERNATIONAL UNIT, 3/WEEK
  2. ANTIHEMOPHILIC FACTOR HUMAN [Suspect]
     Active Substance: ANTIHEMOPHILIC FACTOR HUMAN

REACTIONS (7)
  - Joint injury [Unknown]
  - Haemorrhage [Recovered/Resolved]
  - Contusion [Unknown]
  - Victim of crime [Unknown]
  - Fall [Unknown]
  - Back injury [Unknown]
  - Influenza [Unknown]

NARRATIVE: CASE EVENT DATE: 20250506
